FAERS Safety Report 22001076 (Version 1)
Quarter: 2023Q1

REPORT INFORMATION
  Report Type: Spontaneous
  Country: US (occurrence: US)
  Receive Date: 20230216
  Receipt Date: 20230216
  Transmission Date: 20230417
  Serious: No
  Sender: FDA-Public Use
  Company Number: US-FERRINGPH-2022FE04774

PATIENT
  Sex: Female

DRUGS (2)
  1. DDAVP [Suspect]
     Active Substance: DESMOPRESSIN ACETATE
     Indication: Product used for unknown indication
     Dosage: UNK
     Route: 065
  2. HUMATE-P [Concomitant]
     Active Substance: HUMAN COAGULATION FACTOR VIII/VON WILLEBRAND FACTOR COMPLEX
     Dosage: UNK
     Route: 065

REACTIONS (3)
  - Adverse event [Unknown]
  - Drug ineffective [Unknown]
  - Product administration error [Unknown]
